FAERS Safety Report 6768349-5 (Version None)
Quarter: 2010Q2

REPORT INFORMATION
  Report Type: 
  Country: None (occurrence: None)
  Receive Date: 20100610
  Receipt Date: 20100602
  Transmission Date: 20101027
  Serious: Yes (Death)
  Sender: FDA-Public Use
  Company Number: 2010US001426

PATIENT
  Age: 73 Year
  Sex: Female

DRUGS (4)
  1. PROGRAF [Suspect]
     Indication: LIVER TRANSPLANT
     Dates: start: 19960605, end: 20100101
  2. PROGRAF [Suspect]
     Indication: RENAL TRANSPLANT
     Dates: start: 19960605, end: 20100101
  3. INSULIN [Concomitant]
  4. CELLCEPT [Concomitant]

REACTIONS (2)
  - DIABETES MELLITUS [None]
  - DISEASE PROGRESSION [None]
